FAERS Safety Report 21200398 (Version 3)
Quarter: 2022Q3

REPORT INFORMATION
  Report Type: Spontaneous
  Country: US (occurrence: US)
  Receive Date: 20220811
  Receipt Date: 20220831
  Transmission Date: 20221027
  Serious: Yes (Hospitalization, Other)
  Sender: FDA-Public Use
  Company Number: US-PFIZER INC-202201045838

PATIENT
  Age: 84 Year
  Sex: Male
  Weight: 69.85 kg

DRUGS (6)
  1. PAXLOVID [Suspect]
     Active Substance: NIRMATRELVIR\RITONAVIR
     Indication: COVID-19 treatment
     Dosage: PF-07321332 300 MG]/[RITONAVIR 100 MG]; 2X/DAY
     Dates: start: 20220728
  2. LEVOTHYROXINE [Concomitant]
     Active Substance: LEVOTHYROXINE
     Indication: Gout
     Dosage: 20 MG, 1X/DAY
  3. FLUTICASONE PROPIONATE [Concomitant]
     Active Substance: FLUTICASONE PROPIONATE
     Indication: Sinus disorder
     Dosage: 50 UG (2 SPRAYS UP NOSE, EACH NOSTRIL, AT NIGHT)
  4. METOPROLOL [Concomitant]
     Active Substance: METOPROLOL
     Indication: Blood pressure abnormal
     Dosage: 25 MG
  5. OMEPRAZOLE [Concomitant]
     Active Substance: OMEPRAZOLE
     Indication: Abdominal discomfort
     Dosage: 25 MG
  6. ALPRAZOLAM [Concomitant]
     Active Substance: ALPRAZOLAM
     Indication: Tinnitus
     Dosage: 1 MG (EACH NIGHT)

REACTIONS (14)
  - Fall [Unknown]
  - Loss of consciousness [Unknown]
  - Dysstasia [Unknown]
  - Dizziness [Unknown]
  - Vertigo [Unknown]
  - Head injury [Unknown]
  - Concussion [Unknown]
  - Ear injury [Unknown]
  - Skin discolouration [Unknown]
  - Pneumonia [Unknown]
  - Sepsis [Unknown]
  - Asthenia [Unknown]
  - Decreased appetite [Unknown]
  - Weight decreased [Unknown]

NARRATIVE: CASE EVENT DATE: 20220729
